FAERS Safety Report 10716255 (Version 1)
Quarter: 2015Q1

REPORT INFORMATION
  Report Type: Spontaneous
  Country: US (occurrence: None)
  Receive Date: 20150115
  Receipt Date: 20150115
  Transmission Date: 20150721
  Serious: No
  Sender: FDA-Public Use
  Company Number: None

PATIENT
  Sex: Female

DRUGS (1)
  1. MYCOPHENOLATE [Suspect]
     Active Substance: MYCOPHENOLIC ACID
     Dosage: 2 TABLETS BID ORAL
     Route: 048

REACTIONS (2)
  - Flushing [None]
  - Feeling hot [None]

NARRATIVE: CASE EVENT DATE: 20150114
